FAERS Safety Report 6729635-8 (Version None)
Quarter: 2010Q2

REPORT INFORMATION
  Report Type: 
  Country: None (occurrence: None)
  Receive Date: 20100512
  Receipt Date: 20100329
  Transmission Date: 20101027
  Serious: Yes (Other)
  Sender: FDA-Public Use
  Company Number: AUR-APL-2010-01043

PATIENT
  Age: 55 Year
  Sex: Female

DRUGS (2)
  1. GABAPENTIN [Suspect]
     Indication: DIABETIC NEUROPATHY
     Dosage: 2 CAPSULES, TID, ORAL
     Route: 048
     Dates: start: 20040101
  2. METFORMIN HYDROCHLORIDE [Suspect]
     Indication: DIABETES MELLITUS
     Dosage: 500MG, DAILY, ORAL
     Route: 048

REACTIONS (6)
  - ARTERIAL DISORDER [None]
  - ARTHRALGIA [None]
  - CARDIAC DISORDER [None]
  - MEMORY IMPAIRMENT [None]
  - MULTIPLE ALLERGIES [None]
  - MUSCLE SPASMS [None]
